FAERS Safety Report 8386279 (Version 3)
Quarter: 2014Q3

REPORT INFORMATION
  Report Type: Spontaneous
  Country: US (occurrence: US)
  Receive Date: 20120202
  Receipt Date: 20140916
  Transmission Date: 20150326
  Serious: Yes (Hospitalization, Congenital Anomaly)
  Sender: FDA-Public Use
  Company Number: US-GLAXOSMITHKLINE-A0964008A

PATIENT
  Age: 0 Day
  Sex: Male

DRUGS (5)
  1. PAXIL [Suspect]
     Active Substance: PAROXETINE HYDROCHLORIDE
     Indication: PRODUCT USED FOR UNKNOWN INDICATION
     Dosage: 20MG UNKNOWN
     Route: 064
     Dates: start: 20030129, end: 20030903
  2. PROGESTERONE. [Concomitant]
     Active Substance: PROGESTERONE
     Indication: IN VITRO FERTILISATION
     Route: 064
  3. PAROXETINE HYDROCHLORIDE. [Suspect]
     Active Substance: PAROXETINE HYDROCHLORIDE
     Indication: PRODUCT USED FOR UNKNOWN INDICATION
     Dosage: 20MG UNKNOWN
     Route: 064
     Dates: start: 20031013, end: 20040608
  4. DELESTROGEN [Concomitant]
     Active Substance: ESTRADIOL VALERATE
     Indication: IN VITRO FERTILISATION
     Route: 064
  5. ASPIRIN. [Concomitant]
     Active Substance: ASPIRIN
     Dosage: 81MG PER DAY
     Route: 064

REACTIONS (4)
  - Bronchogenic cyst [Unknown]
  - Foetal exposure during pregnancy [Unknown]
  - Pleural effusion [Unknown]
  - Talipes [Unknown]

NARRATIVE: CASE EVENT DATE: 20040630
